FAERS Safety Report 8071780-1 (Version None)
Quarter: 2012Q1

REPORT INFORMATION
  Report Type: 
  Country: None (occurrence: None)
  Receive Date: 20120126
  Receipt Date: 20120119
  Transmission Date: 20120608
  Serious: Yes (Hospitalization)
  Sender: FDA-Public Use
  Company Number: US-BIOGENIDEC-2012BI002440

PATIENT
  Sex: Female

DRUGS (2)
  1. AVONEX [Suspect]
     Indication: MULTIPLE SCLEROSIS
     Route: 030
     Dates: start: 19971101, end: 20100601
  2. AVONEX [Suspect]
     Route: 030
     Dates: start: 20110801

REACTIONS (4)
  - DEVICE RELATED INFECTION [None]
  - ARTHRITIS INFECTIVE [None]
  - BLOOD COUNT ABNORMAL [None]
  - THROMBOSIS IN DEVICE [None]
